FAERS Safety Report 23730672 (Version 2)
Quarter: 2024Q2

REPORT INFORMATION
  Report Type: Spontaneous
  Country: JP (occurrence: JP)
  Receive Date: 20240411
  Receipt Date: 20240429
  Transmission Date: 20240716
  Serious: Yes (Hospitalization)
  Sender: FDA-Public Use
  Company Number: JP-ZAMBON-202400977COR

PATIENT
  Age: 80 Year
  Sex: Male

DRUGS (2)
  1. SAFINAMIDE [Suspect]
     Active Substance: SAFINAMIDE
     Indication: Parkinson^s disease
     Dosage: NOT PROVIDED
     Route: 048
  2. SELEGILINE HYDROCHLORIDE [Suspect]
     Active Substance: SELEGILINE HYDROCHLORIDE
     Indication: Product used for unknown indication
     Dosage: NOT PROVIDED

REACTIONS (4)
  - General physical health deterioration [Not Recovered/Not Resolved]
  - Pneumonia [Not Recovered/Not Resolved]
  - Blood pressure increased [Not Recovered/Not Resolved]
  - Contraindicated product administered [Unknown]
